FAERS Safety Report 9563967 (Version 1)
Quarter: 2013Q3

REPORT INFORMATION
  Report Type: Spontaneous
  Country: US (occurrence: US)
  Receive Date: 20130928
  Receipt Date: 20130928
  Transmission Date: 20140515
  Serious: No
  Sender: FDA-Public Use
  Company Number: US-BAYER-2013-114520

PATIENT
  Age: 70 Year
  Sex: Female
  Weight: 108.84 kg

DRUGS (7)
  1. ALEVE GELCAPS [Suspect]
  2. GLUCOPHAGE [Concomitant]
     Dosage: UNK
  3. SINGULAIR [Concomitant]
     Dosage: UNK
  4. ASTELIN [AZELASTINE HYDROCHLORIDE] [Concomitant]
     Dosage: UNK
  5. MIRALAX [Concomitant]
     Dosage: UNK
  6. METAMUCIL REGULAR [Concomitant]
     Dosage: UNK
  7. TYLENOL EXTRA-STRENGTH [Concomitant]
     Dosage: UNK

REACTIONS (2)
  - Drug ineffective [None]
  - Extra dose administered [None]
